FAERS Safety Report 6141108-2 (Version None)
Quarter: 2009Q2

REPORT INFORMATION
  Report Type: 
  Country: None (occurrence: None)
  Receive Date: 20090402
  Receipt Date: 20090327
  Transmission Date: 20091009
  Serious: Yes (Other)
  Sender: FDA-Public Use
  Company Number: PHHY2009JP09953

PATIENT

DRUGS (1)
  1. CYCLOSPORINE [Suspect]
     Indication: PEMPHIGOID
     Route: 048

REACTIONS (1)
  - KAPOSI'S SARCOMA [None]
